FAERS Safety Report 8530870-7 (Version None)
Quarter: 2012Q3

REPORT INFORMATION
  Report Type: 
  Country: None (occurrence: None)
  Receive Date: 20120723
  Receipt Date: 20120717
  Transmission Date: 20120928
  Serious: Yes (Other)
  Sender: FDA-Public Use
  Company Number: CO-ROCHE-1089062

PATIENT
  Sex: Male

DRUGS (1)
  1. CELLCEPT [Suspect]
     Indication: RENAL TRANSPLANT
     Route: 048
     Dates: start: 20100131

REACTIONS (3)
  - HYPERKERATOSIS [None]
  - SKIN HYPERTROPHY [None]
  - SQUAMOUS CELL CARCINOMA [None]
